FAERS Safety Report 13673847 (Version 1)
Quarter: 2017Q2

REPORT INFORMATION
  Report Type: Spontaneous
  Country: US (occurrence: US)
  Receive Date: 20170621
  Receipt Date: 20170621
  Transmission Date: 20170830
  Serious: No
  Sender: FDA-Public Use
  Company Number: US-ZYDUS-011409

PATIENT
  Age: 73 Year
  Sex: Male

DRUGS (5)
  1. TAMSULOSIN/TAMSULOSIN HYDROCHLORIDE [Suspect]
     Active Substance: TAMSULOSIN HYDROCHLORIDE
     Indication: BENIGN PROSTATIC HYPERPLASIA
     Route: 048
     Dates: start: 201504
  2. ATENOLOL/CHLORTALIDONE [Concomitant]
     Indication: HYPERTENSION
     Route: 048
     Dates: start: 2001
  3. AMLODIPINE [Concomitant]
     Active Substance: AMLODIPINE BESYLATE
     Indication: HYPERTENSION
     Route: 048
     Dates: start: 2001
  4. ACETYLSALICYLIC ACID [Concomitant]
     Active Substance: ASPIRIN
     Indication: PRODUCT USED FOR UNKNOWN INDICATION
     Route: 048
     Dates: start: 2001
  5. ATORVASTATIN [Concomitant]
     Active Substance: ATORVASTATIN
     Indication: HYPERCHOLESTEROLAEMIA
     Route: 048
     Dates: start: 2001

REACTIONS (6)
  - Weight decreased [Not Recovered/Not Resolved]
  - Blood bilirubin increased [Unknown]
  - Glossitis [Not Recovered/Not Resolved]
  - Lip swelling [Not Recovered/Not Resolved]
  - Tongue blistering [Not Recovered/Not Resolved]
  - Oral discomfort [Not Recovered/Not Resolved]

NARRATIVE: CASE EVENT DATE: 201511
